FAERS Safety Report 15348081 (Version 3)
Quarter: 2018Q4

REPORT INFORMATION
  Report Type: Spontaneous
  Country: US (occurrence: US)
  Receive Date: 20180904
  Receipt Date: 20181002
  Transmission Date: 20190204
  Serious: No
  Sender: FDA-Public Use
  Company Number: US-TEVA-2018-US-950084

PATIENT
  Sex: Female

DRUGS (1)
  1. AMOXAPINE WATSON 25MG [Suspect]
     Active Substance: AMOXAPINE
     Indication: DEPRESSION
     Route: 065
     Dates: start: 2008

REACTIONS (2)
  - Drug ineffective [Unknown]
  - Product storage error [Unknown]

NARRATIVE: CASE EVENT DATE: 201805
